FAERS Safety Report 5926284-6 (Version None)
Quarter: 2008Q4

REPORT INFORMATION
  Report Type: 
  Country: None (occurrence: None)
  Receive Date: 20081017
  Receipt Date: 20081009
  Transmission Date: 20090506
  Serious: Yes (Hospitalization, Other)
  Sender: FDA-Public Use
  Company Number: ADE2008-0339

PATIENT
  Age: 73 Year
  Sex: Female

DRUGS (3)
  1. ZOLPIDEM [Suspect]
     Dosage: 10 MG ONE TIME
  2. QUETIAPINE FUMARATE [Concomitant]
  3. RIVASTIGMINE TARTRATE [Concomitant]

REACTIONS (11)
  - CRYPTOGENIC CIRRHOSIS [None]
  - DISORIENTATION [None]
  - DYSKINESIA [None]
  - HEPATIC FAILURE [None]
  - HEPATIC NEOPLASM [None]
  - HEPATIC NEOPLASM MALIGNANT [None]
  - JOINT SWELLING [None]
  - PORTAL HYPERTENSIVE GASTROPATHY [None]
  - SEPSIS [None]
  - SOPOR [None]
  - VARICES OESOPHAGEAL [None]
